FAERS Safety Report 18747106 (Version 2)
Quarter: 2021Q1

REPORT INFORMATION
  Report Type: Spontaneous
  Country: DE (occurrence: DE)
  Receive Date: 20210115
  Receipt Date: 20210127
  Transmission Date: 20210419
  Serious: Yes (Hospitalization, Other)
  Sender: FDA-Public Use
  Company Number: DE-SA-2021SA009152

PATIENT
  Age: 74 Year
  Sex: Male
  Weight: 81 kg

DRUGS (23)
  1. REMIFENTANIL [Suspect]
     Active Substance: REMIFENTANIL
     Dosage: 1 MINUTE
  2. PROPOFOL. [Concomitant]
     Active Substance: PROPOFOL
     Indication: ANAESTHESIA
     Dosage: UNK
  3. FENTANYL. [Concomitant]
     Active Substance: FENTANYL
     Dosage: 1
  4. EPINEPHRINE. [Interacting]
     Active Substance: EPINEPHRINE
     Dosage: SMALL DOSES OF 5 UG EACH, BOLUSES
     Route: 042
  5. ROCURONIUM BROMIDE. [Interacting]
     Active Substance: ROCURONIUM BROMIDE
     Dosage: UNK
     Route: 042
  6. REMIFENTANIL [Suspect]
     Active Substance: REMIFENTANIL
     Dosage: 1
  7. PROPOFOL. [Concomitant]
     Active Substance: PROPOFOL
     Dosage: 1
     Route: 042
  8. FENTANYL. [Concomitant]
     Active Substance: FENTANYL
     Indication: ANAESTHESIA
  9. DIPOTASSIUM CLORAZEPATE [Concomitant]
     Active Substance: CLORAZEPATE DIPOTASSIUM
     Indication: PREMEDICATION
     Route: 048
  10. DIPOTASSIUM CLORAZEPATE [Concomitant]
     Active Substance: CLORAZEPATE DIPOTASSIUM
     Dosage: 20 MG
     Route: 048
  11. ROCURONIUM BROMIDE. [Interacting]
     Active Substance: ROCURONIUM BROMIDE
     Dosage: SINGLE DOSE
     Route: 042
  12. ROCURONIUM BROMIDE. [Interacting]
     Active Substance: ROCURONIUM BROMIDE
     Dosage: 1 TOTAL
  13. ROCURONIUM BROMIDE. [Interacting]
     Active Substance: ROCURONIUM BROMIDE
     Dosage: 1
     Route: 042
  14. PROPOFOL. [Concomitant]
     Active Substance: PROPOFOL
     Dosage: 1.5 MG/KG
     Route: 042
  15. DIPOTASSIUM CLORAZEPATE [Concomitant]
     Active Substance: CLORAZEPATE DIPOTASSIUM
     Dosage: 1
     Route: 048
  16. ROCURONIUM BROMIDE. [Interacting]
     Active Substance: ROCURONIUM BROMIDE
     Route: 042
  17. OXYGEN. [Concomitant]
     Active Substance: OXYGEN
  18. TAMSULOSIN HYDROCHLORIDE. [Suspect]
     Active Substance: TAMSULOSIN HYDROCHLORIDE
     Indication: BENIGN PROSTATIC HYPERPLASIA
  19. REMIFENTANIL [Suspect]
     Active Substance: REMIFENTANIL
     Dosage: UNK
  20. REMIFENTANIL [Suspect]
     Active Substance: REMIFENTANIL
     Dosage: 0.15 UG/KG
  21. EPINEPHRINE. [Interacting]
     Active Substance: EPINEPHRINE
     Dosage: 15 UG
  22. EPINEPHRINE. [Interacting]
     Active Substance: EPINEPHRINE
     Dosage: 1
  23. NITROUS OXIDE. [Concomitant]
     Active Substance: NITROUS OXIDE

REACTIONS (4)
  - Drug interaction [Recovering/Resolving]
  - Bradycardia [Recovering/Resolving]
  - Hypotension [Recovering/Resolving]
  - Neuromuscular block prolonged [Recovered/Resolved]
